FAERS Safety Report 9442354 (Version 1)
Quarter: 2013Q3

REPORT INFORMATION
  Report Type: Spontaneous
  Country: US (occurrence: US)
  Receive Date: 20130806
  Receipt Date: 20130806
  Transmission Date: 20140515
  Serious: No
  Sender: FDA-Public Use
  Company Number: US-GLAXOSMITHKLINE-A1010408A

PATIENT
  Age: 70 Year
  Sex: Male
  Weight: 102.3 kg

DRUGS (5)
  1. ADVAIR [Suspect]
     Indication: DYSPNOEA
     Dosage: 1PUFF TWICE PER DAY
     Route: 055
     Dates: start: 20121203, end: 201212
  2. CENTRUM SILVER [Concomitant]
  3. DOXAZOSIN [Concomitant]
  4. BABY ASPIRIN [Concomitant]
  5. SPIRIVA [Concomitant]

REACTIONS (3)
  - Tooth disorder [Unknown]
  - Tooth loss [Unknown]
  - Drug ineffective [Unknown]
